FAERS Safety Report 9284985 (Version 3)
Quarter: 2013Q3

REPORT INFORMATION
  Report Type: Spontaneous
  Country: US (occurrence: US)
  Receive Date: 20130513
  Receipt Date: 20130723
  Transmission Date: 20140515
  Serious: Yes (Other)
  Sender: FDA-Public Use
  Company Number: PHEH2013US010404

PATIENT
  Sex: Female

DRUGS (7)
  1. TEKTURNA [Suspect]
     Indication: HYPERTENSION
     Dosage: UNK UKN, UNK
     Dates: end: 201006
  2. DIOVAN [Suspect]
     Indication: HYPERTENSION
     Dosage: 80 MG
     Dates: end: 201006
  3. DIOVAN [Suspect]
     Dosage: 160 MG, QD
  4. RHINOCORT//BECLOMETASONE DIPROPIONATE [Concomitant]
  5. PRENATAL VITAMINS [Concomitant]
  6. SKELAXIN [Concomitant]
  7. AMLODIPINE [Concomitant]
     Dosage: 2.5 MG

REACTIONS (11)
  - Cerebrovascular accident [Unknown]
  - Skin hyperpigmentation [Recovering/Resolving]
  - Skin discolouration [Unknown]
  - Rash macular [Unknown]
  - Rash pruritic [Unknown]
  - Idiopathic urticaria [Unknown]
  - Blood pressure inadequately controlled [Unknown]
  - Pain [Recovered/Resolved]
  - Fear [Unknown]
  - Lymphadenopathy [Unknown]
  - Feeling abnormal [Unknown]
